FAERS Safety Report 15662788 (Version 1)
Quarter: 2018Q4

REPORT INFORMATION
  Report Type: Spontaneous
  Country: US (occurrence: US)
  Receive Date: 20181127
  Receipt Date: 20181127
  Transmission Date: 20190205
  Serious: Yes (Other)
  Sender: FDA-Public Use
  Company Number: US-SA-2018SA173520

PATIENT
  Age: 51 Year
  Sex: Female
  Weight: 111.13 kg

DRUGS (5)
  1. TAXOTERE [Suspect]
     Active Substance: DOCETAXEL
     Dosage: 165 UNK
     Route: 042
     Dates: start: 20061020, end: 20061020
  2. NEOSAR [Suspect]
     Active Substance: CYCLOPHOSPHAMIDE
  3. CERUBIDINE [Suspect]
     Active Substance: DAUNORUBICIN HYDROCHLORIDE
  4. TAXOTERE [Suspect]
     Active Substance: DOCETAXEL
     Indication: PRODUCT USED FOR UNKNOWN INDICATION
     Dosage: 165 MG, Q3W
     Route: 042
     Dates: start: 20060817, end: 20060817
  5. TAXOL [Suspect]
     Active Substance: PACLITAXEL

REACTIONS (1)
  - Alopecia [Recovering/Resolving]

NARRATIVE: CASE EVENT DATE: 20070421
